FAERS Safety Report 18326630 (Version 1)
Quarter: 2020Q3

REPORT INFORMATION
  Report Type: Report from Study
  Country: CO (occurrence: CO)
  Receive Date: 20200929
  Receipt Date: 20200929
  Transmission Date: 20201103
  Serious: Yes (Hospitalization, Other)
  Sender: FDA-Public Use
  Company Number: CO-JNJFOC-A-US2018-167870

PATIENT
  Age: 30 Year
  Sex: Female

DRUGS (6)
  1. FUROSEMIDE. [Concomitant]
     Active Substance: FUROSEMIDE
  2. CANNABIS [Concomitant]
     Active Substance: CANNABIS SATIVA SUBSP. INDICA TOP
     Indication: GASTRITIS
  3. SPIROLAKTON [Concomitant]
  4. OXYGEN. [Concomitant]
     Active Substance: OXYGEN
     Dosage: UNK
     Dates: start: 2017
  5. BOSENTAN. [Concomitant]
     Active Substance: BOSENTAN
     Indication: PULMONARY ARTERIAL HYPERTENSION
  6. VENTAVIS [Suspect]
     Active Substance: ILOPROST
     Indication: PULMONARY ARTERIAL HYPERTENSION
     Dosage: 5 MCG, 6ID
     Route: 055
     Dates: start: 20151117

REACTIONS (10)
  - Psychomotor hyperactivity [Recovering/Resolving]
  - Incorrect product administration duration [Unknown]
  - Liver disorder [Recovering/Resolving]
  - Hyperthyroidism [Recovering/Resolving]
  - Fluid retention [Recovering/Resolving]
  - Loss of consciousness [Recovering/Resolving]
  - Pulmonary arterial hypertension [Unknown]
  - Renal disorder [Recovering/Resolving]
  - Syncope [Recovering/Resolving]
  - Cardiac failure [Recovering/Resolving]

NARRATIVE: CASE EVENT DATE: 2017
